FAERS Safety Report 21354583 (Version 1)
Quarter: 2022Q3

REPORT INFORMATION
  Report Type: Spontaneous
  Country: TR (occurrence: TR)
  Receive Date: 20220920
  Receipt Date: 20220920
  Transmission Date: 20221027
  Serious: Yes (Other)
  Sender: FDA-Public Use
  Company Number: TR-NOVARTISPH-NVSC2022TR211965

PATIENT

DRUGS (1)
  1. EXELON [Suspect]
     Active Substance: RIVASTIGMINE TARTRATE
     Indication: Hallucination
     Dosage: 13.3 MG, QD (PATCH 15 CM2)
     Route: 062

REACTIONS (3)
  - Hallucination [Unknown]
  - Product supply issue [Unknown]
  - Product use in unapproved indication [Unknown]
